FAERS Safety Report 11583372 (Version 1)
Quarter: 2015Q4

REPORT INFORMATION
  Report Type: Spontaneous
  Country: FR (occurrence: FR)
  Receive Date: 20151001
  Receipt Date: 20151001
  Transmission Date: 20160304
  Serious: Yes (Hospitalization, Other)
  Sender: FDA-Public Use
  Company Number: FR-009507513-1509FRA013944

PATIENT
  Age: 64 Year
  Sex: Male

DRUGS (2)
  1. COLCHIMAX [Suspect]
     Active Substance: COLCHICINE\DICYCLOMINE HYDROCHLORIDE
     Dosage: UNK
     Route: 048
     Dates: start: 20150625, end: 20150705
  2. EZETROL [Suspect]
     Active Substance: EZETIMIBE
     Dosage: UNK
     Route: 048
     Dates: end: 20150705

REACTIONS (4)
  - Cholestasis [Recovering/Resolving]
  - Thrombocytopenia [Recovered/Resolved]
  - Hepatocellular injury [Recovering/Resolving]
  - Blood creatine phosphokinase increased [Recovered/Resolved]

NARRATIVE: CASE EVENT DATE: 20150711
